FAERS Safety Report 14345726 (Version 1)
Quarter: 2018Q1

REPORT INFORMATION
  Report Type: Spontaneous
  Country: CA (occurrence: CA)
  Receive Date: 20180103
  Receipt Date: 20180103
  Transmission Date: 20180509
  Serious: Yes (Other)
  Sender: FDA-Public Use
  Company Number: CA-JNJFOC-20170926467

PATIENT
  Age: 35 Year
  Sex: Female
  Weight: 63.5 kg

DRUGS (3)
  1. ASPIRIN. [Suspect]
     Active Substance: ASPIRIN
     Indication: CEREBROVASCULAR ACCIDENT
     Route: 065
     Dates: start: 201110
  2. STELARA [Suspect]
     Active Substance: USTEKINUMAB
     Indication: CROHN^S DISEASE
     Route: 058
     Dates: start: 20170805
  3. BUDESONIDE. [Concomitant]
     Active Substance: BUDESONIDE
     Indication: AUTOIMMUNE HEPATITIS
     Route: 048

REACTIONS (4)
  - Iron deficiency anaemia [Unknown]
  - Renal impairment [Unknown]
  - Myalgia [Not Recovered/Not Resolved]
  - Abnormal dreams [Not Recovered/Not Resolved]

NARRATIVE: CASE EVENT DATE: 20170901
